FAERS Safety Report 17147262 (Version 1)
Quarter: 2019Q4

REPORT INFORMATION
  Report Type: Spontaneous
  Country: IL (occurrence: IL)
  Receive Date: 20191212
  Receipt Date: 20191212
  Transmission Date: 20200122
  Serious: Yes (Hospitalization)
  Sender: FDA-Public Use
  Company Number: IL-GLAXOSMITHKLINE-IL2019224017

PATIENT
  Age: 44 Year
  Sex: Female

DRUGS (2)
  1. VOLTAREN (DICLOFENAC DIETHYLAMMONIUM) [Concomitant]
     Indication: NECK PAIN
     Dosage: UNK
     Route: 030
  2. CATAFLAM [Suspect]
     Active Substance: DICLOFENAC POTASSIUM
     Indication: NECK PAIN
     Dosage: 50 MG
     Route: 065

REACTIONS (3)
  - Abdominal pain [Unknown]
  - Asthenia [Unknown]
  - Blood creatinine increased [Unknown]
